FAERS Safety Report 7969872-8 (Version None)
Quarter: 2011Q4

REPORT INFORMATION
  Report Type: 
  Country: None (occurrence: None)
  Receive Date: 20111122
  Receipt Date: 20110819
  Transmission Date: 20120403
  Serious: No
  Sender: FDA-Public Use
  Company Number: PHEH2011US01504

PATIENT
  Age: 48 Year
  Sex: Female
  Weight: 63.5 kg

DRUGS (1)
  1. GILENYA [Suspect]
     Indication: MULTIPLE SCLEROSIS
     Dosage: 0.5 MG, QD, ORAL
     Route: 048
     Dates: start: 20110809

REACTIONS (12)
  - HYPERSENSITIVITY [None]
  - PALPITATIONS [None]
  - FLUSHING [None]
  - ARTHRALGIA [None]
  - FATIGUE [None]
  - CHEST DISCOMFORT [None]
  - NAUSEA [None]
  - PAIN IN EXTREMITY [None]
  - EYE IRRITATION [None]
  - RASH [None]
  - BREAST TENDERNESS [None]
  - NERVOUSNESS [None]
